FAERS Safety Report 7657147-6 (Version None)
Quarter: 2011Q3

REPORT INFORMATION
  Report Type: 
  Country: None (occurrence: None)
  Receive Date: 20110804
  Receipt Date: 20110531
  Transmission Date: 20111222
  Serious: No
  Sender: FDA-Public Use
  Company Number: US-GLAXOSMITHKLINE-A0929683A

PATIENT
  Age: 57 Year
  Sex: Female

DRUGS (4)
  1. ADVAIR DISKUS 100/50 [Suspect]
     Indication: ASTHMA
     Dosage: 1PUFF TWICE PER DAY
     Route: 055
     Dates: start: 19980101
  2. RITALIN [Concomitant]
  3. CLARITIN [Concomitant]
  4. VENTOLIN HFA [Suspect]
     Indication: ASTHMA
     Dosage: 2PUFF AS REQUIRED
     Route: 055

REACTIONS (4)
  - INCREASED UPPER AIRWAY SECRETION [None]
  - RESPIRATORY TRACT INFECTION [None]
  - OROPHARYNGEAL PAIN [None]
  - PRODUCTIVE COUGH [None]
